FAERS Safety Report 26195556 (Version 1)
Quarter: 2025Q4

REPORT INFORMATION
  Report Type: Spontaneous
  Country: US (occurrence: None)
  Receive Date: 20251224
  Receipt Date: 20251224
  Transmission Date: 20260118
  Serious: Yes (Hospitalization)
  Sender: ENDO
  Company Number: US-ENDO USA, INC.-2025-002499

PATIENT
  Age: 82 Year
  Sex: Male

DRUGS (3)
  1. TESTOPEL [Suspect]
     Active Substance: TESTOSTERONE
     Indication: Product used for unknown indication
     Dosage: UNK UNKNOWN, UNKNOWN (2 MONTHS AGO INJECTED IN THE BUTTOCKS)
  2. TESTOPEL [Suspect]
     Active Substance: TESTOSTERONE
  3. TESTOPEL [Suspect]
     Active Substance: TESTOSTERONE

REACTIONS (1)
  - Aphasia [Not Recovered/Not Resolved]

NARRATIVE: CASE EVENT DATE: 20251201
